FAERS Safety Report 12736706 (Version 1)
Quarter: 2016Q3

REPORT INFORMATION
  Report Type: Spontaneous
  Country: CN (occurrence: CN)
  Receive Date: 20160912
  Receipt Date: 20160912
  Transmission Date: 20161109
  Serious: Yes (Hospitalization)
  Sender: FDA-Public Use
  Company Number: CN-PFIZER INC-2016422800

PATIENT
  Age: 10 Year
  Sex: Male
  Weight: 65 kg

DRUGS (1)
  1. CEFOBID [Suspect]
     Active Substance: CEFOPERAZONE
     Indication: PNEUMONIA
     Dosage: 1.5 G, 2X/DAY
     Route: 041
     Dates: start: 20160625, end: 20160629

REACTIONS (2)
  - Rash [Recovering/Resolving]
  - Condition aggravated [Recovering/Resolving]

NARRATIVE: CASE EVENT DATE: 20160625
